FAERS Safety Report 9222725 (Version 1)
Quarter: 2013Q2

REPORT INFORMATION
  Report Type: Spontaneous
  Country: SE (occurrence: SE)
  Receive Date: 20130410
  Receipt Date: 20130410
  Transmission Date: 20140414
  Serious: Yes (Death, Other)
  Sender: FDA-Public Use
  Company Number: SE-ROCHE-1206208

PATIENT
  Age: 83 Year
  Sex: Female

DRUGS (11)
  1. ACTILYSE [Suspect]
     Indication: CEREBROVASCULAR ACCIDENT
     Route: 042
     Dates: start: 20100516
  2. TROMBYL [Concomitant]
  3. IMPUGAN [Concomitant]
  4. ENALAPRIL [Concomitant]
  5. SIMVASTATIN [Concomitant]
  6. LEVAXIN [Concomitant]
  7. CALCIUM SANDOZ [Concomitant]
  8. BEHEPAN [Concomitant]
     Route: 065
  9. TRILAFON [Concomitant]
  10. NITROMEX [Concomitant]
  11. ALVEDON [Concomitant]
     Dosage: EFFERVESENT TABLET
     Route: 065

REACTIONS (4)
  - Brain stem haemorrhage [Fatal]
  - Bradycardia [Unknown]
  - Depressed level of consciousness [Unknown]
  - Hypertension [Unknown]
